FAERS Safety Report 15250378 (Version 1)
Quarter: 2018Q3

REPORT INFORMATION
  Report Type: Spontaneous
  Country: US (occurrence: US)
  Receive Date: 20180807
  Receipt Date: 20180807
  Transmission Date: 20181010
  Serious: Yes (Other)
  Sender: FDA-Public Use
  Company Number: US-SA-2018SA212658

PATIENT
  Age: 58 Year
  Sex: Female

DRUGS (5)
  1. AMPYRA [Suspect]
     Active Substance: DALFAMPRIDINE
     Indication: MULTIPLE SCLEROSIS
     Dosage: 10 MG, BID
     Route: 048
     Dates: start: 20150727
  2. AUBAGIO [Suspect]
     Active Substance: TERIFLUNOMIDE
     Dosage: UNK UNK, BID
  3. TIMOLOL. [Concomitant]
     Active Substance: TIMOLOL
  4. AMPYRA [Suspect]
     Active Substance: DALFAMPRIDINE
     Dosage: 10 MG, QD
     Route: 048
  5. ASA [Concomitant]
     Active Substance: ASPIRIN

REACTIONS (9)
  - Back pain [Unknown]
  - Renal impairment [Unknown]
  - Gastrointestinal disorder [Not Recovered/Not Resolved]
  - Hepatic cyst [Unknown]
  - Diarrhoea [Not Recovered/Not Resolved]
  - Renal disorder [Unknown]
  - Urine odour abnormal [Unknown]
  - Flatulence [Not Recovered/Not Resolved]
  - Renal cyst [Unknown]
